FAERS Safety Report 9479360 (Version 2)
Quarter: 2013Q3

REPORT INFORMATION
  Report Type: Spontaneous
  Country: US (occurrence: US)
  Receive Date: 20130827
  Receipt Date: 20130827
  Transmission Date: 20140515
  Serious: No
  Sender: FDA-Public Use
  Company Number: US-PFIZER INC-2013222988

PATIENT
  Age: 59 Year
  Sex: Female

DRUGS (10)
  1. LYRICA [Suspect]
     Dosage: 75 MG, 4X/DAY
     Route: 048
  2. TRAZODONE HCL [Concomitant]
     Dosage: 100 MG, 1X/DAY (TAKE ONE TO TWO TABS AT BEDTIME)
  3. ALPRAZOLAM [Concomitant]
     Indication: ANXIETY
     Dosage: 1 MG, AS NEEDED (1/2-1 Q8H PRN)
     Route: 048
  4. PROZAC [Concomitant]
     Dosage: 20 MG, 3X/DAY
     Route: 048
  5. FLEXERIL [Concomitant]
     Indication: MUSCLE SPASMS
     Dosage: 10 MG, 3X/DAY (1/2 TO 1 TID)
     Route: 048
  6. CARISOPRODOL [Concomitant]
     Indication: MUSCLE SPASMS
     Dosage: 350 MG, AS NEEDED (1 TID PRN)
     Route: 048
  7. HYDROCODONE /ACETAMINOPHEN [Concomitant]
     Indication: PAIN
     Dosage: HYDROCODONE (7.5MG)/ACETAMINOPHEN(500MG), 4X/DAY (Q6H)
     Route: 048
  8. OXYCODONE/PARACETAMOL [Concomitant]
     Indication: BREAKTHROUGH PAIN
     Dosage: OXYCODONE HYDROCHOLIRIDE (10MG)/PARACETAMOL (325 MG), AS NEEDED (1-2 Q4H)
     Route: 048
  9. LEVETIRACETAM [Concomitant]
     Dosage: 500 MG, 1X/DAY
     Route: 048
  10. LOSARTAN POTASSIUM [Concomitant]
     Dosage: 100 MG, 1X/DAY
     Route: 048

REACTIONS (8)
  - Rash [Unknown]
  - Herpes zoster [Unknown]
  - Burning sensation [Unknown]
  - Rash papular [Unknown]
  - Rash pruritic [Unknown]
  - Rash erythematous [Unknown]
  - Blister [Unknown]
  - Dermatitis [Unknown]
